FAERS Safety Report 17616230 (Version 4)
Quarter: 2020Q2

REPORT INFORMATION
  Report Type: Spontaneous
  Country: CN (occurrence: CN)
  Receive Date: 20200402
  Receipt Date: 20200415
  Transmission Date: 20200713
  Serious: Yes (Other)
  Sender: FDA-Public Use
  Company Number: CN-PFIZER INC-2020132811

PATIENT
  Age: 50 Year
  Sex: Male

DRUGS (12)
  1. DIAZEPAM. [Concomitant]
     Active Substance: DIAZEPAM
     Dosage: 5 MG, UNK
     Dates: start: 20171020
  2. CYCLOPHOSPHAMIDE. [Concomitant]
     Active Substance: CYCLOPHOSPHAMIDE
     Dosage: 0.5 G, UNK
     Route: 042
     Dates: start: 20171003
  3. SODIUM VALPROATE [Interacting]
     Active Substance: VALPROATE SODIUM
     Indication: EPILEPSY
     Dosage: 0.2 G, 2X/DAY
     Dates: start: 20171026
  4. CEFOPERAZONE SODIUM AND TAZOBACTAM SODIUM [Concomitant]
     Active Substance: CEFOPERAZONE\TAZOBACTAM SODIUM
     Indication: PNEUMONIA
     Dosage: 2.25 G, 2X/DAY
     Route: 041
     Dates: start: 20171001, end: 20171020
  5. CEFODIZIME SODIUM [Concomitant]
     Active Substance: CEFODIZIME SODIUM
     Dosage: 1 G, 2X/DAY
     Route: 041
     Dates: start: 20171022, end: 20171023
  6. BORTEZOMIB. [Concomitant]
     Active Substance: BORTEZOMIB
     Indication: PLASMA CELL MYELOMA
     Dosage: 2.4 MG, UNK
     Route: 058
     Dates: start: 20170925
  7. MEROPENEM. [Suspect]
     Active Substance: MEROPENEM
     Dosage: 1 G, 2X/DAY
     Route: 041
     Dates: start: 20171023, end: 20171031
  8. BORTEZOMIB. [Concomitant]
     Active Substance: BORTEZOMIB
     Dosage: 2.4 MG, UNK
     Route: 058
     Dates: start: 20170928
  9. BORTEZOMIB. [Concomitant]
     Active Substance: BORTEZOMIB
     Dosage: 2.4 MG, UNK
     Route: 058
     Dates: start: 20171003
  10. BORTEZOMIB. [Concomitant]
     Active Substance: BORTEZOMIB
     Dosage: 2.4 MG, UNK
     Route: 058
     Dates: start: 20171006
  11. CYCLOPHOSPHAMIDE. [Concomitant]
     Active Substance: CYCLOPHOSPHAMIDE
     Indication: PLASMA CELL MYELOMA
     Dosage: 0.5 G, UNK
     Route: 042
     Dates: start: 20170925
  12. DEXAMETHASONE. [Concomitant]
     Active Substance: DEXAMETHASONE
     Indication: PLASMA CELL MYELOMA
     Dosage: UNK
     Dates: start: 20170925

REACTIONS (4)
  - Epilepsy [Recovering/Resolving]
  - Drug ineffective [Unknown]
  - Anticonvulsant drug level decreased [Unknown]
  - Drug interaction [Recovering/Resolving]

NARRATIVE: CASE EVENT DATE: 2017
